FAERS Safety Report 14147491 (Version 4)
Quarter: 2017Q4

REPORT INFORMATION
  Report Type: Report from Study
  Country: US (occurrence: US)
  Receive Date: 20171101
  Receipt Date: 20171211
  Transmission Date: 20180321
  Serious: Yes (Death)
  Sender: FDA-Public Use
  Company Number: US-BIOGEN-2017BI00478096

PATIENT
  Sex: Female

DRUGS (1)
  1. PLEGRIDY [Suspect]
     Active Substance: PEGINTERFERON BETA-1A
     Indication: MULTIPLE SCLEROSIS
     Route: 058

REACTIONS (11)
  - Non-small cell lung cancer metastatic [Fatal]
  - General symptom [Fatal]
  - Cerebrovascular accident [Fatal]
  - Osteoporosis [Fatal]
  - Respiratory failure [Fatal]
  - Major depression [Fatal]
  - Emphysema [Fatal]
  - Multiple sclerosis [Fatal]
  - Cardiac failure congestive [Fatal]
  - Spinal column stenosis [Fatal]
  - Myelodysplastic syndrome [Fatal]
